FAERS Safety Report 6651348-1 (Version None)
Quarter: 2010Q1

REPORT INFORMATION
  Report Type: 
  Country: None (occurrence: None)
  Receive Date: 20100325
  Receipt Date: 20100316
  Transmission Date: 20100710
  Serious: Yes (Other)
  Sender: FDA-Public Use
  Company Number: B0640182A

PATIENT
  Age: 28 Year
  Sex: Male

DRUGS (1)
  1. ALLI [Suspect]
     Route: 048
     Dates: end: 20100206

REACTIONS (2)
  - MALAISE [None]
  - RECTAL HAEMORRHAGE [None]
